FAERS Safety Report 7716866-3 (Version None)
Quarter: 2011Q3

REPORT INFORMATION
  Report Type: 
  Country: None (occurrence: None)
  Receive Date: 20110829
  Receipt Date: 20110816
  Transmission Date: 20111222
  Serious: No
  Sender: FDA-Public Use
  Company Number: US-B.I. PHARMACEUTICALS,INC./RIDGEFIELD-2010-BP-15168BP

PATIENT
  Age: 83 Year
  Sex: Male

DRUGS (13)
  1. ATORVASTATIN [Concomitant]
  2. INSULIN [Concomitant]
     Indication: DIABETES MELLITUS
  3. SPIRIVA [Suspect]
     Indication: CHRONIC OBSTRUCTIVE PULMONARY DISEASE
     Dosage: 18 MCG
     Route: 055
     Dates: start: 20090101, end: 20110808
  4. LEVEMIR [Concomitant]
     Indication: DIABETES MELLITUS
  5. POTASSIUM CHLORIDE [Concomitant]
  6. LIPITOR [Concomitant]
  7. FUROSEMIDE [Concomitant]
     Indication: OEDEMA
     Route: 048
  8. ASPIRIN [Concomitant]
  9. CARVEDILOL [Concomitant]
  10. GLYBURIDE [Concomitant]
  11. METFORMIN HYDROCHLORIDE [Concomitant]
  12. CAPTOPRIL [Concomitant]
  13. ISOSORBID MONONITRATE [Concomitant]

REACTIONS (5)
  - URINE FLOW DECREASED [None]
  - PENILE PAIN [None]
  - SKIN DEPIGMENTATION [None]
  - PENILE ERYTHEMA [None]
  - DYSURIA [None]
